FAERS Safety Report 5168735-3 (Version None)
Quarter: 2006Q4

REPORT INFORMATION
  Report Type: 
  Country: None (occurrence: None)
  Receive Date: 20061211
  Receipt Date: 20061204
  Transmission Date: 20070319
  Serious: Yes (Death, Hospitalization)
  Sender: FDA-Public Use
  Company Number: PHBS2006US18804

PATIENT
  Age: 20 Year
  Sex: Female

DRUGS (13)
  1. AZATHIOPRINE [Suspect]
  2. PREDNISONE TAB [Concomitant]
  3. ORAL CONTRACEPTIVE NOS [Suspect]
     Route: 048
  4. GM-CSF [Concomitant]
     Dosage: 2 DF, UNK
  5. GANCICLOVIR [Concomitant]
     Route: 048
  6. NAFCILLIN SODIUM [Concomitant]
     Indication: STAPHYLOCOCCAL INFECTION
  7. VANCOMYCIN [Suspect]
     Indication: STAPHYLOCOCCAL INFECTION
  8. SULFAMETHOXAZOLE + TRIMETHOPRIM [Concomitant]
  9. ZINACEF [Concomitant]
     Indication: PNEUMONIA
  10. CYTOGAM [Concomitant]
  11. FK 506 [Concomitant]
  12. CYCLOSPORINE [Suspect]
     Indication: RENAL TRANSPLANT
     Route: 065
  13. CYCLOSPORINE [Suspect]
     Route: 065

REACTIONS (39)
  - ACQUIRED DIAPHRAGMATIC EVENTRATION [None]
  - ADENOVIRUS INFECTION [None]
  - ANAEMIA [None]
  - BRONCHIAL OBSTRUCTION [None]
  - BRONCHOPULMONARY ASPERGILLOSIS [None]
  - CANDIDIASIS [None]
  - CHEST PAIN [None]
  - CYTOMEGALOVIRUS ANTIBODY POSITIVE [None]
  - CYTOMEGALOVIRUS DUODENITIS [None]
  - CYTOMEGALOVIRUS GASTRITIS [None]
  - CYTOMEGALOVIRUS INFECTION [None]
  - DERMATITIS EXFOLIATIVE [None]
  - EXFOLIATIVE RASH [None]
  - GRAFT VERSUS HOST DISEASE [None]
  - LIFE SUPPORT [None]
  - LIVER FUNCTION TEST ABNORMAL [None]
  - LUNG INFILTRATION [None]
  - LYMPHOCYTE PERCENTAGE DECREASED [None]
  - NAUSEA [None]
  - NEUTROPENIA [None]
  - OCCULT BLOOD POSITIVE [None]
  - ORAL CANDIDIASIS [None]
  - PAIN IN EXTREMITY [None]
  - PANCYTOPENIA [None]
  - PERICARDITIS [None]
  - PLATELET COUNT DECREASED [None]
  - PNEUMONIA [None]
  - POST PROCEDURAL COMPLICATION [None]
  - PRURITUS [None]
  - PYREXIA [None]
  - RASH [None]
  - SEPSIS [None]
  - SKIN EXFOLIATION [None]
  - STAPHYLOCOCCAL INFECTION [None]
  - STEM CELL TRANSPLANT [None]
  - URINE CYTOMEGALOVIRUS POSITIVE [None]
  - VIRUS URINE TEST POSITIVE [None]
  - VOMITING [None]
  - WHITE BLOOD CELL COUNT DECREASED [None]
